FAERS Safety Report 10568632 (Version 1)
Quarter: 2014Q4

REPORT INFORMATION
  Report Type: Other
  Country: DE (occurrence: DE)
  Receive Date: 20141106
  Receipt Date: 20141106
  Transmission Date: 20150529
  Serious: Yes (Congenital Anomaly)
  Sender: FDA-Public Use
  Company Number: DE-MYLANLABS-2014M1009014

PATIENT
  Sex: Female
  Weight: .22 kg

DRUGS (3)
  1. SERTRALINE [Suspect]
     Active Substance: SERTRALINE HYDROCHLORIDE
     Indication: SCHIZOPHRENIA
     Dosage: 100 [MG/D ]; 0 - 13.6 GESTATIONAL WEEK
     Route: 064
     Dates: start: 20080909, end: 20081215
  2. SEROQUEL [Suspect]
     Active Substance: QUETIAPINE FUMARATE
     Indication: SCHIZOPHRENIA
     Dosage: 600 [MG/D ]/ DOSAGE BETWEEN 500 AND 600 MG/D; 0 - 19.1 GESTATIONAL WEEK
     Route: 064
     Dates: start: 20080909, end: 20090121
  3. CYTOTEC [Concomitant]
     Active Substance: MISOPROSTOL
     Indication: ABORTION INDUCED
     Dosage: UNK; 19.1. - 19.1. GESTATIONAL WEEK
     Route: 064
     Dates: start: 20090121, end: 20090121

REACTIONS (4)
  - Arnold-Chiari malformation [Not Recovered/Not Resolved]
  - Foetal exposure during pregnancy [Not Recovered/Not Resolved]
  - Spina bifida [Not Recovered/Not Resolved]
  - Congenital choroid plexus cyst [Not Recovered/Not Resolved]
